FAERS Safety Report 8566030-3 (Version None)
Quarter: 2012Q3

REPORT INFORMATION
  Report Type: 
  Country: None (occurrence: None)
  Receive Date: 20120803
  Receipt Date: 20111010
  Transmission Date: 20120928
  Serious: No
  Sender: FDA-Public Use
  Company Number: US-ABBOTT-11P-163-0862335-00

PATIENT
  Sex: Male
  Weight: 86.26 kg

DRUGS (8)
  1. DOXYCYCLINE HCL [Concomitant]
     Indication: PRODUCT USED FOR UNKNOWN INDICATION
  2. PRILOSEC OTC [Concomitant]
     Indication: PRODUCT USED FOR UNKNOWN INDICATION
  3. NIASPAN [Suspect]
     Indication: HIGH DENSITY LIPOPROTEIN DECREASED
     Dosage: AT BEDTIME
     Dates: start: 20101001
  4. NIASPAN [Suspect]
     Indication: BLOOD TRIGLYCERIDES INCREASED
  5. NIASPAN [Suspect]
     Indication: BLOOD CHOLESTEROL INCREASED
  6. CRESTOR [Concomitant]
     Indication: PRODUCT USED FOR UNKNOWN INDICATION
  7. LEVOTHYROXINE SODIUM [Concomitant]
     Indication: PRODUCT USED FOR UNKNOWN INDICATION
  8. IBUPROFEN [Concomitant]
     Indication: PRODUCT USED FOR UNKNOWN INDICATION

REACTIONS (4)
  - BLOOD CALCIUM INCREASED [None]
  - BLOOD BILIRUBIN INCREASED [None]
  - OROPHARYNGEAL PAIN [None]
  - JAUNDICE [None]
